FAERS Safety Report 9843466 (Version 1)
Quarter: 2013Q4

REPORT INFORMATION
  Report Type: Spontaneous
  Country: US (occurrence: None)
  Receive Date: 20131219
  Receipt Date: 20131219
  Transmission Date: 20140711
  Serious: Yes (Death)
  Sender: FDA-Public Use
  Company Number: 163-20785-13082023

PATIENT
  Age: 56 Year
  Sex: Female

DRUGS (6)
  1. THALOMID (THALIDOMIDE) (200 MILLIGRAM, CAPSULES) [Suspect]
     Indication: MALIGNANT MELANOMA
     Dosage: 1 IN  1 D
     Route: 048
     Dates: start: 20120831, end: 20121201
  2. TEMODAR [Concomitant]
  3. FISH OIL [Concomitant]
  4. CALCIUM [Concomitant]
  5. MULTI MEGA MINERAL [Concomitant]
  6. VITAMIN C [Concomitant]

REACTIONS (1)
  - Death [None]
